FAERS Safety Report 5612153-8 (Version None)
Quarter: 2008Q1

REPORT INFORMATION
  Report Type: 
  Country: None (occurrence: None)
  Receive Date: 20080204
  Receipt Date: 20080121
  Transmission Date: 20080703
  Serious: Yes (Hospitalization)
  Sender: FDA-Public Use
  Company Number: US-AMGEN-KDL238632

PATIENT
  Sex: Female

DRUGS (1)
  1. ENBREL [Suspect]
     Indication: RHEUMATOID ARTHRITIS
     Route: 058
     Dates: start: 20011001

REACTIONS (7)
  - HYPOTHYROIDISM [None]
  - INJECTION SITE PAIN [None]
  - NASAL CONGESTION [None]
  - PERIPHERAL NERVE OPERATION [None]
  - RESPIRATORY TRACT CONGESTION [None]
  - RHEUMATOID ARTHRITIS [None]
  - RHEUMATOID NODULE REMOVAL [None]
